FAERS Safety Report 21530246 (Version 1)
Quarter: 2022Q4

REPORT INFORMATION
  Report Type: Spontaneous
  Country: US (occurrence: None)
  Receive Date: 20221029
  Receipt Date: 20221029
  Transmission Date: 20230113
  Serious: Yes (Other)
  Sender: FDA-Public Use
  Company Number: None

PATIENT
  Age: 61 Year
  Sex: Female

DRUGS (1)
  1. BEBTELOVIMAB [Suspect]
     Active Substance: BEBTELOVIMAB
     Indication: COVID-19
     Dosage: FREQUENCY : ONCE;?
     Route: 042
     Dates: start: 20221006, end: 20221006

REACTIONS (5)
  - Paraesthesia [None]
  - Hypoaesthesia [None]
  - Respiratory tract congestion [None]
  - Cough [None]
  - Lip dry [None]

NARRATIVE: CASE EVENT DATE: 20221014
